FAERS Safety Report 21833332 (Version 1)
Quarter: 2023Q1

REPORT INFORMATION
  Report Type: Spontaneous
  Country: US (occurrence: US)
  Receive Date: 20230107
  Receipt Date: 20230107
  Transmission Date: 20230418
  Serious: No
  Sender: FDA-Public Use
  Company Number: US-UNITED THERAPEUTICS-UNT-2022-031774

PATIENT
  Age: 73 Year
  Sex: Male

DRUGS (3)
  1. REMODULIN [Suspect]
     Active Substance: TREPROSTINIL
     Indication: Pulmonary arterial hypertension
     Dosage: 0.006 ?G/KG, CONTINUING
     Route: 041
     Dates: start: 20221222
  2. REMODULIN [Suspect]
     Active Substance: TREPROSTINIL
     Dosage: UNK, CONTINUING (INCREASED DOSE)
     Route: 041
     Dates: start: 20221230
  3. REMODULIN [Suspect]
     Active Substance: TREPROSTINIL
     Dosage: 0.006 ?G/KG, CONTINUING
     Route: 041

REACTIONS (4)
  - Pain in jaw [Recovering/Resolving]
  - Muscle spasms [Unknown]
  - Blood pressure fluctuation [Unknown]
  - Heart rate abnormal [Unknown]

NARRATIVE: CASE EVENT DATE: 20221201
